FAERS Safety Report 6622114-8 (Version None)
Quarter: 2010Q1

REPORT INFORMATION
  Report Type: 
  Country: None (occurrence: None)
  Receive Date: 20100223
  Receipt Date: 20091027
  Transmission Date: 20100710
  Serious: No
  Sender: FDA-Public Use
  Company Number: 8053811

PATIENT
  Sex: Female

DRUGS (1)
  1. CERTOLIZUMAB (UCB, INC) [Suspect]
     Indication: CROHN'S DISEASE
     Dosage: (400 MG 1X/2 WEEKS SUBCUTANEOUS
     Route: 058

REACTIONS (2)
  - ARTHRALGIA [None]
  - MYALGIA [None]
